FAERS Safety Report 8380512-9 (Version None)
Quarter: 2012Q2

REPORT INFORMATION
  Report Type: 
  Country: None (occurrence: None)
  Receive Date: 20120523
  Receipt Date: 20120515
  Transmission Date: 20120825
  Serious: Yes (Other)
  Sender: FDA-Public Use
  Company Number: NZ-GLAXOSMITHKLINE-B0803048A

PATIENT
  Age: 49 Year
  Sex: Male

DRUGS (4)
  1. PAROXETINE HCL [Suspect]
     Indication: REPETITIVE STRAIN INJURY
     Route: 065
     Dates: start: 20000101
  2. TRYPTOPHAN [Concomitant]
  3. VITAMIN B-12 [Concomitant]
  4. LOVAZA [Concomitant]

REACTIONS (5)
  - TREMOR [None]
  - RESTLESSNESS [None]
  - ANXIETY [None]
  - WITHDRAWAL SYNDROME [None]
  - SUICIDAL IDEATION [None]
